FAERS Safety Report 15388711 (Version 1)
Quarter: 2018Q3

REPORT INFORMATION
  Report Type: Spontaneous
  Country: US (occurrence: US)
  Receive Date: 20180907
  Receipt Date: 20180907
  Transmission Date: 20181010
  Serious: Yes (Hospitalization)
  Sender: FDA-Public Use
  Company Number: None

PATIENT
  Age: 56 Year
  Sex: Female
  Weight: 56.25 kg

DRUGS (21)
  1. HRT [Concomitant]
     Active Substance: UNSPECIFIED INGREDIENT
  2. REGIONAL ALLERGIES ROCKY MTNS. U.S (HOMEOPATHICS) [Suspect]
     Active Substance: HOMEOPATHICS
     Indication: PRURITUS
     Dosage: ?          QUANTITY:3 SPRAY(S);?
     Route: 048
     Dates: start: 20180607, end: 20180718
  3. APPETITE AND WEIGHT WITH P.H.A.T. (HOMEOPATHICS) [Suspect]
     Active Substance: HOMEOPATHICS
     Indication: ABDOMINAL DISTENSION
     Dosage: ?          QUANTITY:3 SPRAY(S);?
     Route: 048
     Dates: start: 20180613, end: 20180814
  4. PROGRAF [Concomitant]
     Active Substance: TACROLIMUS\TACROLIMUS ANHYDROUS
  5. RAPAMUNE [Concomitant]
     Active Substance: SIROLIMUS
  6. POTASSIUM CHLORIDE. [Concomitant]
     Active Substance: POTASSIUM CHLORIDE
  7. L?METHYLFOLATE [Concomitant]
     Active Substance: LEVOMEFOLIC ACID
  8. L?CARNITINE [Concomitant]
     Active Substance: LEVOCARNITINE
  9. APPETITE AND WEIGHT WITH P.H.A.T. (HOMEOPATHICS) [Suspect]
     Active Substance: HOMEOPATHICS
     Indication: INCREASED APPETITE
     Dosage: ?          QUANTITY:3 SPRAY(S);?
     Route: 048
     Dates: start: 20180613, end: 20180814
  10. REGIONAL ALLERGIES ROCKY MTNS. U.S (HOMEOPATHICS) [Suspect]
     Active Substance: HOMEOPATHICS
     Indication: RESPIRATORY TRACT CONGESTION
     Dosage: ?          QUANTITY:3 SPRAY(S);?
     Route: 048
     Dates: start: 20180607, end: 20180718
  11. PLAVIX [Concomitant]
     Active Substance: CLOPIDOGREL BISULFATE
  12. PRAVACHOL [Concomitant]
     Active Substance: PRAVASTATIN SODIUM
  13. LISINOPRIL. [Concomitant]
     Active Substance: LISINOPRIL
  14. COQ10 [Concomitant]
     Active Substance: UBIDECARENONE
  15. NAC [Concomitant]
  16. APPETITE AND WEIGHT WITH P.H.A.T. (HOMEOPATHICS) [Suspect]
     Active Substance: HOMEOPATHICS
     Indication: SWELLING
     Dosage: ?          QUANTITY:3 SPRAY(S);?
     Route: 048
     Dates: start: 20180613, end: 20180814
  17. TOTAL YEAST [Concomitant]
  18. GLYCINE STICKS [Concomitant]
  19. REGIONAL ALLERGIES ROCKY MTNS. U.S (HOMEOPATHICS) [Suspect]
     Active Substance: HOMEOPATHICS
     Indication: LACRIMATION INCREASED
     Dosage: ?          QUANTITY:3 SPRAY(S);?
     Route: 048
     Dates: start: 20180607, end: 20180718
  20. BABY ASPIRIN [Concomitant]
     Active Substance: ASPIRIN
  21. VITAMIN B COMPLEX [Concomitant]
     Active Substance: CYANOCOBALAMIN\DEXPANTHENOL\NIACINAMIDE\PYRIDOXINE HYDROCHLORIDE\RIBOFLAVIN 5^-PHOSPHATE SODIUM\THIAMINE HYDROCHLORIDE\VITAMIN B COMPLEX

REACTIONS (2)
  - Appendicitis [None]
  - Bacterial infection [None]

NARRATIVE: CASE EVENT DATE: 20180816
